FAERS Safety Report 6129654-9 (Version None)
Quarter: 2009Q1

REPORT INFORMATION
  Report Type: 
  Country: None (occurrence: None)
  Receive Date: 20090323
  Receipt Date: 20090323
  Transmission Date: 20090719
  Serious: Yes (Hospitalization)
  Sender: FDA-Public Use
  Company Number: None

PATIENT
  Age: 74 Year
  Sex: Female
  Weight: 50 kg

DRUGS (3)
  1. CALCITRIOL [Suspect]
     Indication: HYPOPARATHYROIDISM
     Dosage: 1 MICROGRAM DAILY ORAL (DATES OF USE: CHRONIC)
     Route: 048
  2. ACETAMINOPHEN [Concomitant]
  3. M.V.I. [Concomitant]

REACTIONS (5)
  - ASTHENIA [None]
  - COORDINATION ABNORMAL [None]
  - HYPERCALCAEMIA [None]
  - RENAL FAILURE ACUTE [None]
  - VISUAL IMPAIRMENT [None]
